FAERS Safety Report 21002437 (Version 4)
Quarter: 2025Q2

REPORT INFORMATION
  Report Type: Spontaneous
  Country: DE (occurrence: DE)
  Receive Date: 20220624
  Receipt Date: 20250522
  Transmission Date: 20250716
  Serious: No
  Sender: UCB
  Company Number: DE-UCBSA-2022034681

PATIENT
  Sex: Female

DRUGS (1)
  1. NEUPRO [Suspect]
     Active Substance: ROTIGOTINE
     Indication: Product used for unknown indication
     Route: 062

REACTIONS (1)
  - Product adhesion issue [Unknown]
